FAERS Safety Report 4941649-7 (Version None)
Quarter: 2006Q1

REPORT INFORMATION
  Report Type: 
  Country: None (occurrence: None)
  Receive Date: 20060308
  Receipt Date: 20060222
  Transmission Date: 20060701
  Serious: Yes (Death)
  Sender: FDA-Public Use
  Company Number: US-2006-000034

PATIENT
  Age: 36 Year
  Sex: Male

DRUGS (7)
  1. BETASERON [Suspect]
     Indication: MULTIPLE SCLEROSIS
     Dosage: SUBCUTANEOUS
     Route: 058
     Dates: start: 19980723
  2. NEURONTIN [Concomitant]
  3. DOXEPIN HCL [Concomitant]
  4. TEGRETON CR (CARBAMAZEPINE) [Concomitant]
  5. COPAXONE [Concomitant]
  6. PAXIL [Concomitant]
  7. ZONEGRAN [Concomitant]

REACTIONS (1)
  - DEATH [None]
